FAERS Safety Report 8764612 (Version 1)
Quarter: 2012Q4

REPORT INFORMATION
  Report Type: 
  Country: US (occurrence: US)
  Receive Date: 20120831
  Receipt Date: 20120831
  Transmission Date: 20130627
  Serious: No
  Sender: FDA-Public Use
  Company Number: US-ASTRAZENECA-2012SE58010

PATIENT
  Age: 58 Year
  Sex: Female

DRUGS (2)
  1. NEXIUM [Suspect]
     Route: 048
  2. TOPROL XL [Suspect]
     Route: 048

REACTIONS (6)
  - Gastrooesophageal reflux disease [Unknown]
  - Blood pressure fluctuation [Unknown]
  - Headache [Unknown]
  - Off label use [Unknown]
  - Drug effect decreased [Unknown]
  - Drug ineffective [Unknown]
